FAERS Safety Report 10977686 (Version 2)
Quarter: 2015Q1

REPORT INFORMATION
  Report Type: Spontaneous
  Country: None (occurrence: None)
  Receive Date: 20150226
  Receipt Date: 20150226
  Transmission Date: 20150721
  Serious: No
  Sender: FDA-Public Use
  Company Number: TPA2010A00505

PATIENT
  Age: 40 Year
  Sex: Male
  Weight: 77.11 kg

DRUGS (4)
  1. SIMVASTATIN. [Concomitant]
     Active Substance: SIMVASTATIN
  2. PREDNISONE. [Concomitant]
     Active Substance: PREDNISONE
  3. LISINOPRIL (LISINOPRIL) [Suspect]
     Active Substance: LISINOPRIL
     Indication: GOUT
     Route: 048
     Dates: start: 201001
  4. ULORIC [Suspect]
     Active Substance: FEBUXOSTAT
     Indication: HYPERTENSION
     Route: 048
     Dates: start: 201001

REACTIONS (3)
  - Rash [None]
  - Myalgia [None]
  - Gout [None]

NARRATIVE: CASE EVENT DATE: 200911
